FAERS Safety Report 9815586 (Version 1)
Quarter: 2014Q1

REPORT INFORMATION
  Report Type: Spontaneous
  Country: GB (occurrence: GB)
  Receive Date: 20140114
  Receipt Date: 20140114
  Transmission Date: 20141002
  Serious: Yes (Hospitalization)
  Sender: FDA-Public Use
  Company Number: GB-ROCHE-1332837

PATIENT
  Age: 74 Year
  Sex: Male

DRUGS (16)
  1. NAPROXEN [Suspect]
     Indication: PRODUCT USED FOR UNKNOWN INDICATION
     Route: 048
     Dates: start: 20131125, end: 20131209
  2. ANADIN EXTRA [Suspect]
     Indication: NECK PAIN
     Route: 048
  3. ASCORBIC ACID [Suspect]
     Indication: PRODUCT USED FOR UNKNOWN INDICATION
     Route: 065
  4. CEFALEXIN [Concomitant]
     Route: 065
  5. AMOXICILLIN [Concomitant]
     Route: 065
  6. FUROSEMIDE [Concomitant]
     Route: 065
  7. METFORMIN HYDROCHLORIDE [Concomitant]
     Route: 048
  8. MUCODYNE [Concomitant]
     Route: 048
  9. OMEPRAZOLE [Concomitant]
     Route: 065
  10. ORAMORPH [Concomitant]
     Indication: DYSPNOEA
     Dosage: AS NECESSARY
     Route: 065
  11. PREDNISOLONE [Concomitant]
     Route: 065
  12. SALBUTAMOL [Concomitant]
     Dosage: AS NECESSARY
     Route: 065
  13. SERETIDE [Concomitant]
     Route: 065
  14. SIMVASTATIN [Concomitant]
     Route: 065
  15. SPIRONOLACTONE [Concomitant]
     Route: 065
  16. TIOTROPIUM [Concomitant]
     Route: 065

REACTIONS (4)
  - Faeces discoloured [Recovering/Resolving]
  - Malaise [Recovering/Resolving]
  - Gastrointestinal haemorrhage [Recovering/Resolving]
  - Haematemesis [Recovering/Resolving]
